FAERS Safety Report 8522706-5 (Version None)
Quarter: 2012Q3

REPORT INFORMATION
  Report Type: 
  Country: None (occurrence: None)
  Receive Date: 20120719
  Receipt Date: 20120716
  Transmission Date: 20120928
  Serious: Yes (Other)
  Sender: FDA-Public Use
  Company Number: AT-GLAXOSMITHKLINE-B0757215A

PATIENT
  Age: 51 Year
  Sex: Male
  Weight: 73 kg

DRUGS (2)
  1. SEROQUEL [Suspect]
     Indication: BIPOLAR DISORDER
     Dosage: 500MG PER DAY
     Route: 065
     Dates: start: 20051130
  2. LAMICTAL [Suspect]
     Indication: BIPOLAR DISORDER
     Dosage: 200MG PER DAY
     Dates: start: 20051130

REACTIONS (2)
  - CONGESTIVE CARDIOMYOPATHY [None]
  - OVERDOSE [None]
